FAERS Safety Report 9222773 (Version 1)
Quarter: 2013Q2

REPORT INFORMATION
  Report Type: Spontaneous
  Country: US (occurrence: US)
  Receive Date: 20130410
  Receipt Date: 20130410
  Transmission Date: 20140414
  Serious: Yes (Other)
  Sender: FDA-Public Use
  Company Number: US-TEVA-396913USA

PATIENT
  Sex: Male

DRUGS (11)
  1. PROAIR HFA [Suspect]
     Indication: CHRONIC OBSTRUCTIVE PULMONARY DISEASE
     Route: 055
  2. XANAX [Concomitant]
     Indication: SLEEP DISORDER
  3. TEMAZEPAM [Concomitant]
     Indication: SLEEP DISORDER
  4. KLONOPIN [Concomitant]
     Indication: SLEEP DISORDER
  5. SPIRIVA [Concomitant]
     Indication: CHRONIC OBSTRUCTIVE PULMONARY DISEASE
  6. VITAMIN C [Concomitant]
  7. MULTIVITAMIN [Concomitant]
  8. VENLAFAXINE [Concomitant]
  9. HYDROCHLOROTHIAZIDE [Concomitant]
     Indication: BLOOD PRESSURE
  10. METOPROLOL ER [Concomitant]
  11. HYDROCODONE W/ACETAMINOPHEN [Concomitant]
     Indication: PAIN
     Dosage: 7.5MG HYDROCODONE/500MG TYLENOL

REACTIONS (3)
  - Oxygen saturation abnormal [Unknown]
  - Chronic obstructive pulmonary disease [Unknown]
  - Confusional state [Unknown]
